FAERS Safety Report 11070811 (Version 2)
Quarter: 2015Q2

REPORT INFORMATION
  Report Type: Report from Study
  Country: IT (occurrence: IT)
  Receive Date: 20150428
  Receipt Date: 20150428
  Transmission Date: 20150821
  Serious: Yes (Death)
  Sender: FDA-Public Use
  Company Number: IT-ROCHE-1449208

PATIENT

DRUGS (2)
  1. ALTEPLASE [Suspect]
     Active Substance: ALTEPLASE
     Indication: THROMBOSIS IN DEVICE
     Dosage: INFUSED INTO THE LEFT VENTRICLE THROUGH A PIGTAIL CATHETER AT A RATE OF 1 MG/MIN FOR A TOTAL DOSE OF
     Route: 016
  2. HEPARIN [Suspect]
     Active Substance: HEPARIN SODIUM
     Indication: ANTICOAGULANT THERAPY
     Route: 042

REACTIONS (4)
  - Disseminated intravascular coagulation [Fatal]
  - Haematoma [Unknown]
  - Off label use [Unknown]
  - Gastrointestinal haemorrhage [Fatal]
